FAERS Safety Report 21929647 (Version 2)
Quarter: 2023Q1

REPORT INFORMATION
  Report Type: Report from Study
  Country: US (occurrence: US)
  Receive Date: 20230131
  Receipt Date: 20230321
  Transmission Date: 20230418
  Serious: No
  Sender: FDA-Public Use
  Company Number: US-ACADIA PHARMACEUTICALS INC.-ACA-2023-PIM-000071

PATIENT
  Sex: Female

DRUGS (2)
  1. NUPLAZID [Suspect]
     Active Substance: PIMAVANSERIN TARTRATE
     Indication: Parkinson^s disease psychosis
     Dosage: 34 MILLIGRAM, QD
     Route: 048
     Dates: end: 202301
  2. NUPLAZID [Suspect]
     Active Substance: PIMAVANSERIN TARTRATE
     Dosage: 34 MILLIGRAM, QD
     Route: 048
     Dates: start: 20230127

REACTIONS (8)
  - Delusion [Recovering/Resolving]
  - Abnormal behaviour [Unknown]
  - Logorrhoea [Unknown]
  - Anxiety [Unknown]
  - Hallucination [Recovering/Resolving]
  - Confusional state [Unknown]
  - Fall [Unknown]
  - Hallucination, visual [Not Recovered/Not Resolved]
